FAERS Safety Report 11071491 (Version 2)
Quarter: 2015Q3

REPORT INFORMATION
  Report Type: Spontaneous
  Country: CA (occurrence: CA)
  Receive Date: 20150424
  Receipt Date: 20150924
  Transmission Date: 20151125
  Serious: Yes (Disabling)
  Sender: FDA-Public Use
  Company Number: 2015-1238-SPO

PATIENT
  Age: 51 Year
  Sex: Female
  Weight: 61 kg

DRUGS (1)
  1. ESTROGEL [Suspect]
     Active Substance: ESTRADIOL

REACTIONS (7)
  - Muscle spasms [Unknown]
  - Back pain [Unknown]
  - Dyskinesia [Unknown]
  - Facial spasm [Unknown]
  - Neck pain [Unknown]
  - Hypoaesthesia [Unknown]
  - Arthralgia [Unknown]
